FAERS Safety Report 6421489-2 (Version None)
Quarter: 2009Q4

REPORT INFORMATION
  Report Type: 
  Country: None (occurrence: None)
  Receive Date: 20091030
  Receipt Date: 20091027
  Transmission Date: 20100525
  Serious: Yes (Disabling)
  Sender: FDA-Public Use
  Company Number: US-PFIZER INC-2009249487

PATIENT
  Sex: Female
  Weight: 68 kg

DRUGS (3)
  1. XANAX [Suspect]
     Dosage: UNK
     Dates: start: 19870101
  2. XANAX [Suspect]
     Dates: start: 20090501
  3. VITAMIN D [Concomitant]
     Dosage: UNK

REACTIONS (11)
  - ANXIETY [None]
  - CONDITION AGGRAVATED [None]
  - DISABILITY [None]
  - DRUG EFFECT DECREASED [None]
  - HYPOTHYROIDISM [None]
  - MALAISE [None]
  - MIDDLE INSOMNIA [None]
  - NAUSEA [None]
  - NERVOUSNESS [None]
  - PRODUCT SUBSTITUTION ISSUE [None]
  - REACTION TO DRUG EXCIPIENTS [None]
